FAERS Safety Report 7949157-6 (Version None)
Quarter: 2011Q4

REPORT INFORMATION
  Report Type: 
  Country: None (occurrence: None)
  Receive Date: 20111130
  Receipt Date: 20111109
  Transmission Date: 20120403
  Serious: No
  Sender: FDA-Public Use
  Company Number: US-B.I. PHARMACEUTICALS,INC./RIDGEFIELD-2011-BP-26990BP

PATIENT
  Sex: Male

DRUGS (9)
  1. SPIRIVA [Suspect]
     Dosage: 18 MCG
     Route: 055
     Dates: start: 20111109, end: 20111109
  2. ADVAIR DISKUS 100/50 [Concomitant]
     Indication: CHRONIC OBSTRUCTIVE PULMONARY DISEASE
  3. HYDROCODONE [Concomitant]
     Indication: LUNG LOBECTOMY
  4. LATANOPROST [Concomitant]
     Indication: GLAUCOMA
  5. SPIRIVA [Suspect]
     Indication: CHRONIC OBSTRUCTIVE PULMONARY DISEASE
     Dosage: 18 MCG
     Route: 055
     Dates: start: 20110404
  6. MUTI VIT [Concomitant]
     Indication: ROUTINE HEALTH MAINTENANCE
  7. PRAVASTATIN [Concomitant]
     Indication: BLOOD CHOLESTEROL INCREASED
  8. VITAMIN B-12 [Concomitant]
     Indication: ANAEMIA
  9. MAGNESIUM HYDROXIDE TAB [Concomitant]
     Indication: ABDOMINAL DISCOMFORT

REACTIONS (1)
  - INCORRECT ROUTE OF DRUG ADMINISTRATION [None]
